FAERS Safety Report 13035072 (Version 6)
Quarter: 2018Q1

REPORT INFORMATION
  Report Type: Report from Study
  Country: JP (occurrence: JP)
  Receive Date: 20161216
  Receipt Date: 20180322
  Transmission Date: 20180508
  Serious: Yes (Other)
  Sender: FDA-Public Use
  Company Number: JP-BRISTOL-MYERS SQUIBB COMPANY-BMS-2016-107316

PATIENT
  Age: 67 Year
  Sex: Male

DRUGS (1)
  1. NIVOLUMAB [Suspect]
     Active Substance: NIVOLUMAB
     Indication: NON-SMALL CELL LUNG CANCER RECURRENT
     Dosage: 3 MG/KG, UNK
     Route: 041
     Dates: start: 20160322

REACTIONS (30)
  - Gamma-glutamyltransferase increased [Recovered/Resolved]
  - Epistaxis [Recovered/Resolved]
  - Insomnia [Recovered/Resolved]
  - Malaise [Recovered/Resolved]
  - Pulmonary haemorrhage [Recovered/Resolved]
  - Eosinophil count increased [Recovered/Resolved]
  - Urinary tract infection [Recovered/Resolved]
  - Infusion related reaction [Recovered/Resolved]
  - Alopecia [Recovered/Resolved]
  - Back pain [Recovered/Resolved]
  - Peripheral sensory neuropathy [Recovered/Resolved]
  - Dermatitis acneiform [Recovered/Resolved]
  - Aspartate aminotransferase increased [Recovered/Resolved]
  - Proteinuria [Recovered/Resolved]
  - Urinary incontinence [Recovered/Resolved]
  - Hyperglycaemia [Recovered/Resolved]
  - White blood cell count decreased [Recovered/Resolved]
  - Diarrhoea [Recovered/Resolved]
  - Fatigue [Recovered/Resolved]
  - Hypokalaemia [Recovered/Resolved]
  - Dry skin [Recovered/Resolved]
  - Hypoalbuminaemia [Recovered/Resolved]
  - Hypertension [Recovered/Resolved]
  - Onychomadesis [Recovered/Resolved]
  - Anaemia [Recovering/Resolving]
  - Lymphocyte count decreased [Recovered/Resolved]
  - Nausea [Recovered/Resolved]
  - Peripheral motor neuropathy [Recovered/Resolved]
  - Laryngeal pain [Recovered/Resolved]
  - Hiccups [Recovered/Resolved]

NARRATIVE: CASE EVENT DATE: 20160325
